FAERS Safety Report 8956818 (Version 1)
Quarter: 2012Q4

REPORT INFORMATION
  Report Type: Report from Study
  Country: CA (occurrence: CA)
  Receive Date: 20121210
  Receipt Date: 20121210
  Transmission Date: 20130627
  Serious: Yes (Hospitalization)
  Sender: FDA-Public Use
  Company Number: CA-ROCHE-1138382

PATIENT
  Age: 64 Year
  Sex: Male

DRUGS (25)
  1. ALEGLITAZAR [Suspect]
     Indication: CARDIOVASCULAR EVENT PROPHYLAXIS
     Dosage: date of last dose prior to SAE on 07/Jun/2012
     Route: 048
     Dates: start: 20120419
  2. LANTUS [Suspect]
     Indication: PRODUCT USED FOR UNKNOWN INDICATION
     Dosage: 26 unit
     Route: 065
     Dates: start: 20120904
  3. NORVASC [Suspect]
     Indication: PRODUCT USED FOR UNKNOWN INDICATION
     Route: 065
  4. METOPROLOL [Concomitant]
     Route: 065
     Dates: start: 20120318
  5. ONGLYZA [Concomitant]
     Route: 065
     Dates: start: 20110209, end: 20120607
  6. METFORMIN [Concomitant]
     Route: 065
     Dates: start: 20110829, end: 20120523
  7. METFORMIN [Concomitant]
     Route: 065
     Dates: start: 20120524
  8. AMLODIPINE [Concomitant]
     Route: 065
     Dates: start: 20120318
  9. ACETAMINOPHEN [Concomitant]
     Route: 065
     Dates: start: 20120209
  10. GLYBURIDE [Concomitant]
     Route: 065
     Dates: start: 20110209, end: 20120524
  11. PLAVIX [Concomitant]
     Route: 065
     Dates: start: 20120318
  12. CRESTOR [Concomitant]
     Route: 065
     Dates: start: 20120318
  13. RIVASA [Concomitant]
     Route: 065
     Dates: start: 20120318
  14. PERINDOPRIL [Concomitant]
     Route: 065
     Dates: start: 20101230
  15. INDAPAMIDE [Concomitant]
     Route: 065
     Dates: start: 20120412
  16. INDAPAMIDE [Concomitant]
     Route: 065
     Dates: start: 20101230, end: 20120411
  17. NITRODUR [Concomitant]
     Route: 065
     Dates: start: 20120318, end: 20120528
  18. FUROSEMIDE [Concomitant]
     Route: 065
     Dates: start: 20120316, end: 20120416
  19. FUROSEMIDE [Concomitant]
     Route: 065
     Dates: start: 20120904
  20. FUROSEMIDE [Concomitant]
     Route: 065
     Dates: start: 20120918
  21. DOVONEX [Concomitant]
     Route: 065
     Dates: start: 201109
  22. DOVONEX [Concomitant]
     Route: 065
     Dates: start: 20120904
  23. IMDUR [Concomitant]
     Route: 065
     Dates: start: 20120529
  24. NPH INSULIN [Concomitant]
     Dosage: 12 unit
     Route: 065
     Dates: start: 20120705, end: 20120903
  25. HUMALOG INSULIN [Concomitant]
     Dosage: 6 unit
     Route: 065
     Dates: start: 20120904

REACTIONS (3)
  - Pulmonary oedema [Not Recovered/Not Resolved]
  - Generalised oedema [Recovering/Resolving]
  - Cardiomegaly [None]
